FAERS Safety Report 21118479 (Version 5)
Quarter: 2022Q4

REPORT INFORMATION
  Report Type: Report from Study
  Country: US (occurrence: US)
  Receive Date: 20220722
  Receipt Date: 20221115
  Transmission Date: 20230113
  Serious: Yes (Other)
  Sender: FDA-Public Use
  Company Number: US-NOVARTISTESTPH-NVSC2022US166127

PATIENT
  Sex: Female

DRUGS (2)
  1. COSENTYX [Suspect]
     Active Substance: SECUKINUMAB
     Indication: Psoriasis
     Dosage: 300 MG (ONE SINGLE DOSE)
     Route: 058
  2. COSENTYX [Suspect]
     Active Substance: SECUKINUMAB
     Indication: Psoriatic arthropathy

REACTIONS (7)
  - Pulmonary congestion [Recovering/Resolving]
  - Abdominal discomfort [Unknown]
  - Pyrexia [Recovered/Resolved]
  - Respiratory disorder [Recovered/Resolved]
  - Chest discomfort [Recovering/Resolving]
  - Cough [Recovering/Resolving]
  - Head discomfort [Recovering/Resolving]
